FAERS Safety Report 20437666 (Version 1)
Quarter: 2022Q1

REPORT INFORMATION
  Report Type: Spontaneous
  Country: CA (occurrence: CA)
  Receive Date: 20220207
  Receipt Date: 20220207
  Transmission Date: 20220423
  Serious: Yes (Other)
  Sender: FDA-Public Use
  Company Number: CA-JNJFOC-20220212105

PATIENT
  Age: 60 Year
  Sex: Female
  Weight: 62 kg

DRUGS (4)
  1. REMICADE [Suspect]
     Active Substance: INFLIXIMAB
     Indication: Rheumatoid arthritis
     Route: 042
  2. CELEBREX [Concomitant]
     Active Substance: CELECOXIB
  3. FOLIC ACID [Concomitant]
     Active Substance: FOLIC ACID
  4. METHOTREXATE [Concomitant]
     Active Substance: METHOTREXATE
     Indication: Rheumatoid arthritis

REACTIONS (8)
  - Haematochezia [Recovered/Resolved]
  - Anorectal discomfort [Recovered/Resolved]
  - Anorectal swelling [Recovered/Resolved]
  - Dry skin [Recovered/Resolved]
  - Fungal infection [Recovered/Resolved]
  - Hypersensitivity [Recovered/Resolved]
  - Rash [Recovered/Resolved]
  - Off label use [Recovered/Resolved]
